FAERS Safety Report 23272807 (Version 1)
Quarter: 2023Q4

REPORT INFORMATION
  Report Type: Spontaneous
  Country: CN (occurrence: None)
  Receive Date: 20231207
  Receipt Date: 20231207
  Transmission Date: 20240110
  Serious: Yes (Other)
  Sender: FDA-Public Use
  Company Number: 2023A273890

PATIENT
  Age: 22867 Day
  Sex: Female
  Weight: 80 kg

DRUGS (1)
  1. DAPAGLIFLOZIN [Suspect]
     Active Substance: DAPAGLIFLOZIN
     Indication: Type 2 diabetes mellitus
     Route: 048
     Dates: start: 20231015, end: 20231015

REACTIONS (2)
  - Marasmus [Recovering/Resolving]
  - Urine output decreased [Unknown]

NARRATIVE: CASE EVENT DATE: 20231016
